FAERS Safety Report 8387408-7 (Version None)
Quarter: 2012Q2

REPORT INFORMATION
  Report Type: 
  Country: None (occurrence: None)
  Receive Date: 20120525
  Receipt Date: 20120517
  Transmission Date: 20120825
  Serious: Yes (Other)
  Sender: FDA-Public Use
  Company Number: NL-BAXTER-2012BH007091

PATIENT
  Sex: Female
  Weight: 76 kg

DRUGS (5)
  1. KIOVIG [Suspect]
     Route: 042
     Dates: start: 20110218
  2. KIOVIG [Suspect]
     Route: 042
  3. BACTRIMEL [Concomitant]
     Route: 048
     Dates: start: 20110127
  4. KIOVIG [Suspect]
     Route: 042
     Dates: start: 20110401
  5. KIOVIG [Suspect]
     Route: 042
     Dates: start: 20110422

REACTIONS (4)
  - HEADACHE [None]
  - NAUSEA [None]
  - ERYTHEMA [None]
  - PROCEDURAL NAUSEA [None]
